FAERS Safety Report 6071131-8 (Version None)
Quarter: 2009Q1

REPORT INFORMATION
  Report Type: 
  Country: None (occurrence: None)
  Receive Date: 20090209
  Receipt Date: 20090130
  Transmission Date: 20090719
  Serious: Yes (Other)
  Sender: FDA-Public Use
  Company Number: US-PURDUE-USA_2004_0017547

PATIENT
  Age: 40 Year
  Sex: Male

DRUGS (4)
  1. OXYCONTIN [Suspect]
     Indication: PAIN
     Dosage: 160 MG, TID
     Route: 065
     Dates: end: 20040913
  2. VALIUM [Concomitant]
     Dosage: 10 MG, TID
     Route: 065
  3. METHADONE HCL [Concomitant]
     Indication: DRUG USE FOR UNKNOWN INDICATION
     Dosage: 30 MG, TID
     Route: 065
  4. CLONIDINE HCL [Concomitant]
     Indication: DRUG USE FOR UNKNOWN INDICATION
     Dosage: .1 MG, TID
     Route: 065

REACTIONS (10)
  - AGORAPHOBIA [None]
  - ANXIETY [None]
  - DRUG DEPENDENCE [None]
  - FEELING ABNORMAL [None]
  - FORMICATION [None]
  - HOMICIDAL IDEATION [None]
  - NIGHTMARE [None]
  - PERSONALITY CHANGE [None]
  - SUICIDAL IDEATION [None]
  - WITHDRAWAL SYNDROME [None]
